FAERS Safety Report 8489956-8 (Version None)
Quarter: 2012Q2

REPORT INFORMATION
  Report Type: 
  Country: None (occurrence: None)
  Receive Date: 20120626
  Receipt Date: 20120613
  Transmission Date: 20120825
  Serious: Yes (Other)
  Sender: FDA-Public Use
  Company Number: 2012SA04332

PATIENT
  Sex: Female

DRUGS (1)
  1. CAPZASIN HP CREME /UNKNON / UNKNOWN [Suspect]
     Dates: start: 20120101, end: 20120101

REACTIONS (3)
  - ERYTHEMA [None]
  - APPLICATION SITE PAIN [None]
  - SCREAMING [None]
